FAERS Safety Report 23696285 (Version 1)
Quarter: 2024Q2

REPORT INFORMATION
  Report Type: Spontaneous
  Country: US (occurrence: None)
  Receive Date: 20240401
  Receipt Date: 20240401
  Transmission Date: 20240716
  Serious: No
  Sender: FDA-Public Use
  Company Number: None

PATIENT
  Age: 31 Year
  Sex: Female
  Weight: 63.5 kg

DRUGS (2)
  1. ESCITALOPRAM [Suspect]
     Active Substance: ESCITALOPRAM OXALATE
     Dates: start: 20230831
  2. LISDEXAMFETAMINE DIMESYLATE [Suspect]
     Active Substance: LISDEXAMFETAMINE DIMESYLATE
     Dates: start: 20230831, end: 20230928

REACTIONS (5)
  - Abortion spontaneous [None]
  - Maternal exposure during pregnancy [None]
  - Foetal heart rate abnormal [None]
  - Staphylococcal infection [None]
  - Small for dates baby [None]

NARRATIVE: CASE EVENT DATE: 20231016
